FAERS Safety Report 4527631-2 (Version None)
Quarter: 2004Q4

REPORT INFORMATION
  Report Type: 
  Country: None (occurrence: None)
  Receive Date: 20041124
  Receipt Date: 20040527
  Transmission Date: 20050328
  Serious: Yes (Other)
  Sender: FDA-Public Use
  Company Number: 2004031331

PATIENT
  Age: 41 Year
  Sex: Male

DRUGS (4)
  1. TIKOSYN [Suspect]
     Indication: ATRIAL FIBRILLATION
     Dosage: 1000 MCG (500 MCG, 2 IN 1 D), ORAL
     Route: 048
     Dates: start: 20040507, end: 20040508
  2. DIGOXIN [Concomitant]
  3. PINDOLOL [Concomitant]
  4. WARFARIN SODIUM [Concomitant]

REACTIONS (1)
  - VENTRICULAR TACHYCARDIA [None]
